FAERS Safety Report 5008108-7 (Version None)
Quarter: 2006Q2

REPORT INFORMATION
  Report Type: 
  Country: None (occurrence: None)
  Receive Date: 20060404
  Receipt Date: 20050713
  Transmission Date: 20061013
  Serious: Yes (Other)
  Sender: FDA-Public Use
  Company Number: 2005100270

PATIENT
  Age: 36 Year
  Sex: Male

DRUGS (4)
  1. GEODON [Suspect]
     Indication: SCHIZOPHRENIA
     Dosage: 160 (2 IN 1 D),
  2. CLONOPIN [Concomitant]
  3. LITHOBID [Concomitant]
  4. PAXIL [Concomitant]

REACTIONS (4)
  - ADVERSE DRUG REACTION [None]
  - OEDEMA PERIPHERAL [None]
  - SWELLING FACE [None]
  - URTICARIA [None]
